FAERS Safety Report 14221846 (Version 2)
Quarter: 2017Q4

REPORT INFORMATION
  Report Type: Report from Study
  Country: SG (occurrence: SG)
  Receive Date: 20171123
  Receipt Date: 20171227
  Transmission Date: 20180321
  Serious: Yes (Hospitalization)
  Sender: FDA-Public Use
  Company Number: SG-ROCHE-2026007

PATIENT
  Age: 48 Year
  Sex: Male
  Weight: 50.6 kg

DRUGS (4)
  1. BEVACIZUMAB. [Suspect]
     Active Substance: BEVACIZUMAB
     Dosage: THERAPY RESTARTED
     Route: 042
     Dates: start: 20171212
  2. BEVACIZUMAB. [Suspect]
     Active Substance: BEVACIZUMAB
     Indication: NON-SMALL CELL LUNG CANCER STAGE IV
     Dosage: MOST RECENT DOSE PRIOR TO THE EVENT: 26/OCT/2017 (765 MG)
     Route: 042
     Dates: start: 20171026
  3. OSIMERTINIB. [Suspect]
     Active Substance: OSIMERTINIB
     Dosage: THERAPY RESTARTED
     Route: 048
     Dates: start: 20171123
  4. OSIMERTINIB. [Suspect]
     Active Substance: OSIMERTINIB
     Indication: NON-SMALL CELL LUNG CANCER STAGE IV
     Dosage: MOST RECENT DOSE PRIOR TO THE EVENT: 15/NOV/2017
     Route: 048
     Dates: start: 20171026

REACTIONS (1)
  - Influenza [Recovered/Resolved]

NARRATIVE: CASE EVENT DATE: 20171115
